FAERS Safety Report 12210472 (Version 1)
Quarter: 2016Q1

REPORT INFORMATION
  Report Type: Spontaneous
  Country: US (occurrence: None)
  Receive Date: 20160324
  Receipt Date: 20160324
  Transmission Date: 20160526
  Serious: Yes (Life-Threatening, Hospitalization, Other)
  Sender: FDA-Public Use
  Company Number: None

PATIENT
  Age: 32 Year
  Sex: Female
  Weight: 50.8 kg

DRUGS (6)
  1. TUMERIC [Concomitant]
     Active Substance: TURMERIC
  2. ALOE VERA [Concomitant]
     Active Substance: ALOE VERA LEAF
  3. AZITHROMYCIN ANHYDROUS. [Suspect]
     Active Substance: AZITHROMYCIN ANHYDROUS
     Indication: EAR INFECTION
     Dosage: 1 PILLS  250MG FOR 5 DAYS  TWICE DAILY  TAKEN BY MOUTH
     Route: 048
  4. DANDELION ROOT [Concomitant]
  5. MILK THISTLE [Concomitant]
     Active Substance: MILK THISTLE
  6. AZITHROMYCIN ANHYDROUS. [Suspect]
     Active Substance: AZITHROMYCIN ANHYDROUS
     Indication: SINUSITIS
     Dosage: 1 PILLS  250MG FOR 5 DAYS  TWICE DAILY  TAKEN BY MOUTH
     Route: 048

REACTIONS (7)
  - Pyrexia [None]
  - Chills [None]
  - Nausea [None]
  - Splenomegaly [None]
  - Hepatic failure [None]
  - Haematemesis [None]
  - Abdominal pain upper [None]

NARRATIVE: CASE EVENT DATE: 20160318
